FAERS Safety Report 20102347 (Version 1)
Quarter: 2021Q4

REPORT INFORMATION
  Report Type: Spontaneous
  Country: US (occurrence: US)
  Receive Date: 20211123
  Receipt Date: 20211123
  Transmission Date: 20220303
  Serious: No
  Sender: FDA-Public Use
  Company Number: US-PFIZER INC-2021560648

PATIENT
  Age: 30 Year
  Sex: Female

DRUGS (3)
  1. XELJANZ XR [Suspect]
     Active Substance: TOFACITINIB CITRATE
     Indication: Rheumatoid arthritis
     Dosage: 11 MG
     Dates: start: 20210131
  2. PREDNISONE [Suspect]
     Active Substance: PREDNISONE
     Dosage: 10 MG
  3. PREDNISONE [Suspect]
     Active Substance: PREDNISONE
     Dosage: 7 MG

REACTIONS (2)
  - Cold sweat [Recovered/Resolved]
  - Feeling jittery [Recovered/Resolved]
